FAERS Safety Report 8839572 (Version 1)
Quarter: 2012Q4

REPORT INFORMATION
  Report Type: 
  Country: BR (occurrence: BR)
  Receive Date: 20121015
  Receipt Date: 20121015
  Transmission Date: 20130627
  Serious: Yes (Other)
  Sender: FDA-Public Use
  Company Number: PHHY2012BR089751

PATIENT
  Sex: Female
  Weight: 40 kg

DRUGS (2)
  1. DIOVAN AMLO FIX [Suspect]
     Indication: HYPERTENSION
     Dosage: 1 DF (160mg valsar and 5mg amlo), QD, at night
     Route: 048
  2. EFEXOR XR [Suspect]
     Indication: DEPRESSION

REACTIONS (3)
  - Diabetes mellitus [Unknown]
  - Mydriasis [Recovered/Resolved]
  - Tremor [Recovered/Resolved]
